FAERS Safety Report 5859593-X (Version None)
Quarter: 2008Q3

REPORT INFORMATION
  Report Type: 
  Country: None (occurrence: None)
  Receive Date: 20080826
  Receipt Date: 20080826
  Transmission Date: 20090109
  Serious: Yes (Other)
  Sender: FDA-Public Use
  Company Number: None

PATIENT
  Sex: Female
  Weight: 60.9 kg

DRUGS (1)
  1. RISPERIDONE [Suspect]
     Dates: start: 20080627, end: 20080627

REACTIONS (1)
  - DRUG HYPERSENSITIVITY [None]
